FAERS Safety Report 13281218 (Version 3)
Quarter: 2021Q1

REPORT INFORMATION
  Report Type: Report from Study
  Country: NL (occurrence: NL)
  Receive Date: 20170301
  Receipt Date: 20210207
  Transmission Date: 20210419
  Serious: Yes (Death, Hospitalization, Other)
  Sender: FDA-Public Use
  Company Number: NL-SHIRE-NL201700107

PATIENT
  Age: 11 Year
  Sex: Male

DRUGS (2)
  1. IDURSULFASE [Suspect]
     Active Substance: IDURSULFASE
     Dosage: 0.5 MILLIGRAM/KILOGRAM, 1/WEEK
     Route: 041
     Dates: start: 20071224
  2. IDURSULFASE [Suspect]
     Active Substance: IDURSULFASE
     Indication: MUCOPOLYSACCHARIDOSIS II
     Dosage: 0.5 MILLIGRAM/KILOGRAM, 1/WEEK
     Route: 041
     Dates: start: 20070626

REACTIONS (5)
  - Fall [Recovered/Resolved]
  - Epilepsy [Recovered/Resolved]
  - Infusion related reaction [Recovered/Resolved]
  - Concussion [Recovered/Resolved]
  - Intellectual disability [Fatal]

NARRATIVE: CASE EVENT DATE: 20130725
